FAERS Safety Report 7272822-3 (Version None)
Quarter: 2011Q1

REPORT INFORMATION
  Report Type: 
  Country: None (occurrence: None)
  Receive Date: 20110203
  Receipt Date: 20110124
  Transmission Date: 20110831
  Serious: Yes (Hospitalization, Other)
  Sender: FDA-Public Use
  Company Number: JP-MERCK-1012USA04081

PATIENT
  Age: 41 Year
  Sex: Male
  Weight: 83 kg

DRUGS (13)
  1. JANUVIA [Suspect]
     Indication: TYPE 2 DIABETES MELLITUS
     Route: 048
     Dates: start: 20100212
  2. GLUFAST [Concomitant]
     Indication: TYPE 2 DIABETES MELLITUS
     Route: 048
     Dates: start: 20090703
  3. MUCOSTA [Concomitant]
     Indication: GASTROOESOPHAGEAL REFLUX DISEASE
     Route: 048
     Dates: start: 20091113
  4. URSO 250 [Concomitant]
     Indication: HEPATIC STEATOSIS
     Route: 048
  5. MICARDIS [Concomitant]
     Indication: HYPERTENSION
     Route: 048
     Dates: start: 20100312
  6. ADALAT CC [Concomitant]
     Indication: HYPERTENSION
     Route: 048
     Dates: start: 20100409
  7. ACECOL [Concomitant]
     Indication: HYPERTENSION
     Route: 048
     Dates: start: 20090703, end: 20100312
  8. AMARYL [Concomitant]
     Indication: TYPE 2 DIABETES MELLITUS
     Route: 048
  9. MELBIN [Concomitant]
     Indication: TYPE 2 DIABETES MELLITUS
     Route: 048
     Dates: start: 20090703
  10. JANUVIA [Suspect]
     Route: 048
     Dates: start: 20100604
  11. SEIBULE [Concomitant]
     Indication: TYPE 2 DIABETES MELLITUS
     Route: 048
  12. ALLOPURINOL [Concomitant]
     Indication: HYPERURICAEMIA
     Route: 048
     Dates: start: 20090703
  13. TAKEPRON [Concomitant]
     Indication: GASTROOESOPHAGEAL REFLUX DISEASE
     Route: 048
     Dates: start: 20090605

REACTIONS (6)
  - OROPHARYNGEAL PAIN [None]
  - MUSCULOSKELETAL PAIN [None]
  - PYREXIA [None]
  - HEPATIC FUNCTION ABNORMAL [None]
  - ARTHRALGIA [None]
  - NECK PAIN [None]
